FAERS Safety Report 9917455 (Version 2)
Quarter: 2014Q1

REPORT INFORMATION
  Report Type: Spontaneous
  Country: US (occurrence: US)
  Receive Date: 20140221
  Receipt Date: 20140306
  Transmission Date: 20141002
  Serious: No
  Sender: FDA-Public Use
  Company Number: US-PFIZER INC-2014046512

PATIENT
  Age: 84 Year
  Sex: Female
  Weight: 67.12 kg

DRUGS (1)
  1. DETROL [Suspect]
     Dosage: 24 MG, UNK

REACTIONS (2)
  - Incorrect dose administered [Unknown]
  - Drug ineffective [Unknown]
